FAERS Safety Report 12198902 (Version 1)
Quarter: 2016Q1

REPORT INFORMATION
  Report Type: Spontaneous
  Country: US (occurrence: US)
  Receive Date: 20160322
  Receipt Date: 20160322
  Transmission Date: 20160526
  Serious: No
  Sender: FDA-Public Use
  Company Number: US-BAYER-2016-052528

PATIENT
  Age: 30 Year
  Sex: Female
  Weight: 90.7 kg

DRUGS (3)
  1. ALEVE [Suspect]
     Active Substance: NAPROXEN SODIUM
     Indication: ANALGESIC THERAPY
  2. ALEVE [Suspect]
     Active Substance: NAPROXEN SODIUM
     Indication: HEADACHE
     Dosage: 2 DF, PRN
     Route: 048
     Dates: start: 2012
  3. ALEVE [Suspect]
     Active Substance: NAPROXEN SODIUM
     Indication: SINUS HEADACHE

REACTIONS (1)
  - Drug effect delayed [None]

NARRATIVE: CASE EVENT DATE: 2012
